FAERS Safety Report 9796713 (Version 1)
Quarter: 2014Q1

REPORT INFORMATION
  Report Type: Spontaneous
  Country: US (occurrence: US)
  Receive Date: 20140103
  Receipt Date: 20140103
  Transmission Date: 20141002
  Serious: Yes (Other)
  Sender: FDA-Public Use
  Company Number: CHPA2013US019023

PATIENT
  Sex: Female

DRUGS (2)
  1. THERAFLU HOT LIQUID MEDICINE UNKNOWN [Suspect]
     Indication: INFLUENZA
     Dosage: UNK
     Route: 048
  2. ALKA SELTZER                       /00057201/ [Concomitant]

REACTIONS (3)
  - Loss of consciousness [Unknown]
  - Headache [Unknown]
  - Influenza [Unknown]
